FAERS Safety Report 9969797 (Version 1)
Quarter: 2014Q1

REPORT INFORMATION
  Report Type: Report from Study
  Country: CA (occurrence: CA)
  Receive Date: 20140306
  Receipt Date: 20140306
  Transmission Date: 20141002
  Serious: Yes (Other)
  Sender: FDA-Public Use
  Company Number: CA-JNJFOC-20140217378

PATIENT
  Age: 23 Year
  Sex: Female
  Weight: 107.3 kg

DRUGS (6)
  1. REMICADE [Suspect]
     Indication: CROHN^S DISEASE
     Route: 042
     Dates: start: 20120919
  2. RANITIDINE [Concomitant]
     Route: 065
  3. VITAMIN [Concomitant]
     Route: 065
  4. PREDNISONE [Concomitant]
     Route: 065
  5. IRON [Concomitant]
     Route: 065
  6. CORTISONE [Concomitant]
     Route: 061

REACTIONS (3)
  - Abdominal pain [Recovered/Resolved]
  - Infrequent bowel movements [Recovered/Resolved]
  - Rectal haemorrhage [Recovered/Resolved]
